FAERS Safety Report 4664550-5 (Version None)
Quarter: 2005Q2

REPORT INFORMATION
  Report Type: 
  Country: None (occurrence: None)
  Receive Date: 20050518
  Receipt Date: 20050302
  Transmission Date: 20051028
  Serious: Yes (Life-Threatening)
  Sender: FDA-Public Use
  Company Number: US-GLAXOSMITHKLINE-A0548149A

PATIENT
  Age: 42 Year
  Sex: Female
  Weight: 70.5 kg

DRUGS (1)
  1. WELLBUTRIN XL [Suspect]
     Indication: DEPRESSION
     Dosage: 300MG PER DAY
     Route: 048

REACTIONS (3)
  - CONTUSION [None]
  - GRAND MAL CONVULSION [None]
  - LACERATION [None]
